FAERS Safety Report 13007961 (Version 1)
Quarter: 2016Q4

REPORT INFORMATION
  Report Type: Report from Study
  Country: US (occurrence: US)
  Receive Date: 20161208
  Receipt Date: 20161208
  Transmission Date: 20170207
  Serious: Yes (Death, Other)
  Sender: FDA-Public Use
  Company Number: US-CIPLA LTD.-2016US22723

PATIENT

DRUGS (5)
  1. CETUXIMAB [Suspect]
     Active Substance: CETUXIMAB
     Indication: REFRACTORY CANCER
     Dosage: UNK, FIRST DOSE OVER 2 HOURS
     Route: 042
  2. CETUXIMAB [Suspect]
     Active Substance: CETUXIMAB
     Dosage: UNK, ONE-HOUR ONCE PER WEEK
     Route: 042
  3. SERIBANTUMAB [Suspect]
     Active Substance: SERIBANTUMAB
     Indication: REFRACTORY CANCER
     Dosage: UNK, FIRST DOSE OVER 90 MIN
     Route: 042
  4. SERIBANTUMAB [Suspect]
     Active Substance: SERIBANTUMAB
     Dosage: UNK, ONE-HOUR ONCE PER WEEK
     Route: 042
  5. IRINOTECAN [Suspect]
     Active Substance: IRINOTECAN
     Indication: REFRACTORY CANCER
     Dosage: UNK, ONCE EVERY TWO WEEKS
     Route: 042

REACTIONS (7)
  - Toxicity to various agents [None]
  - Respiratory failure [Fatal]
  - Diarrhoea [Unknown]
  - Neutropenia [Unknown]
  - Dehydration [Unknown]
  - Urinary tract infection [Unknown]
  - Cardiac arrest [Unknown]
